FAERS Safety Report 14491475 (Version 1)
Quarter: 2018Q1

REPORT INFORMATION
  Report Type: Report from Study
  Country: DE (occurrence: DE)
  Receive Date: 20180206
  Receipt Date: 20180206
  Transmission Date: 20180509
  Serious: Yes (Death, Hospitalization)
  Sender: FDA-Public Use
  Company Number: DE-TESARO, INC.-DE-2018TSO00592

PATIENT

DRUGS (1)
  1. NIRAPARIB [Suspect]
     Active Substance: NIRAPARIB
     Indication: OVARIAN CANCER
     Dosage: 2 DF, QD
     Route: 048
     Dates: start: 201707, end: 20171223

REACTIONS (3)
  - Hyponatraemia [Fatal]
  - Pain [None]
  - Intentional underdose [Recovered/Resolved]

NARRATIVE: CASE EVENT DATE: 20171220
